FAERS Safety Report 9765137 (Version 1)
Quarter: 2013Q4

REPORT INFORMATION
  Report Type: Spontaneous
  Country: US (occurrence: US)
  Receive Date: 20131217
  Receipt Date: 20131217
  Transmission Date: 20140711
  Serious: No
  Sender: FDA-Public Use
  Company Number: US-GLAXOSMITHKLINE-A0999026A

PATIENT
  Sex: Female

DRUGS (16)
  1. VOTRIENT [Suspect]
     Indication: PRODUCT USED FOR UNKNOWN INDICATION
     Dosage: 200MG SEE DOSAGE TEXT
     Route: 048
  2. DILAUDID [Concomitant]
  3. B-12 [Concomitant]
     Dosage: 1MG CUMULATIVE DOSE
  4. ZOMETA [Concomitant]
  5. ZOFRAN [Concomitant]
  6. LOPRESSOR [Concomitant]
  7. LORAZEPAM [Concomitant]
  8. MULTIPLE VITAMIN [Concomitant]
  9. MAGNESIUM OXIDE [Concomitant]
  10. VITAMIN C [Concomitant]
  11. CALCIUM + VIT D [Concomitant]
  12. CELEBREX [Concomitant]
  13. FEMARA [Concomitant]
  14. CHLORTHALIDONE [Concomitant]
  15. SUDAFED [Concomitant]
  16. PHAZYME [Concomitant]

REACTIONS (5)
  - Hepatic enzyme increased [Unknown]
  - Diarrhoea [Unknown]
  - Nausea [Unknown]
  - Hypertension [Unknown]
  - Drug ineffective [Unknown]
